FAERS Safety Report 6393044-4 (Version None)
Quarter: 2009Q4

REPORT INFORMATION
  Report Type: 
  Country: None (occurrence: None)
  Receive Date: 20091008
  Receipt Date: 20080122
  Transmission Date: 20100525
  Serious: Yes (Other)
  Sender: FDA-Public Use
  Company Number: US-ASTRAZENECA-2007UW01548

PATIENT
  Age: 8209 Day
  Sex: Female
  Weight: 86.2 kg

DRUGS (12)
  1. SEROQUEL [Suspect]
     Indication: ANXIETY
     Dosage: 25 MG-450 MG
     Route: 048
     Dates: start: 20030807
  2. SEROQUEL [Suspect]
     Indication: DEPRESSION
     Dosage: 25 MG-450 MG
     Route: 048
     Dates: start: 20030807
  3. SEROQUEL [Suspect]
     Dosage: 100 MG TO 300 MG TABLET
     Route: 048
     Dates: start: 20050101, end: 20050601
  4. SEROQUEL [Suspect]
     Dosage: 100 MG TO 300 MG TABLET
     Route: 048
     Dates: start: 20050101, end: 20050601
  5. RISPERDAL [Suspect]
     Indication: ANXIETY
     Dosage: 0.5 MG DISPENSED
     Dates: start: 20020718
  6. RISPERDAL [Suspect]
     Indication: DEPRESSION
     Dosage: 0.5 MG DISPENSED
     Dates: start: 20020718
  7. RISPERDAL [Suspect]
     Dosage: 1 MG TO 2 MG TABLET
     Dates: start: 20040601, end: 20050101
  8. RISPERDAL [Suspect]
     Dosage: 1 MG TO 2 MG TABLET
     Dates: start: 20040601, end: 20050101
  9. XANAX [Concomitant]
     Dates: start: 20050504
  10. ZOLOFT [Concomitant]
     Route: 048
     Dates: start: 20040108
  11. EFFEXOR [Concomitant]
     Dosage: 100 MG-300 MG
     Route: 048
     Dates: start: 20021021
  12. TRAZODONE [Concomitant]
     Dosage: 50 MG-100 MG
     Dates: start: 20030807

REACTIONS (4)
  - DIABETES MELLITUS [None]
  - DRUG EXPOSURE DURING PREGNANCY [None]
  - GESTATIONAL DIABETES [None]
  - TYPE 2 DIABETES MELLITUS [None]
